FAERS Safety Report 9809477 (Version 2)
Quarter: 2014Q1

REPORT INFORMATION
  Report Type: Spontaneous
  Country: US (occurrence: US)
  Receive Date: 20140110
  Receipt Date: 20140110
  Transmission Date: 20141002
  Serious: Yes (Hospitalization)
  Sender: FDA-Public Use
  Company Number: US-SANOFI-AVENTIS-2011SA075134

PATIENT
  Age: 65 Year
  Sex: Female

DRUGS (11)
  1. PLAVIX [Suspect]
     Route: 048
     Dates: start: 20110719, end: 20110806
  2. SAXAGLIPTIN HYDROCHLORIDE [Suspect]
     Indication: TYPE 2 DIABETES MELLITUS
     Route: 065
     Dates: start: 20110719, end: 20120706
  3. METFORMIN HYDROCHLORIDE [Suspect]
     Indication: TYPE 2 DIABETES MELLITUS
     Route: 065
  4. PLATELET AGGREGATION INHIBITORS [Concomitant]
     Dates: start: 20110719
  5. HMG COA REDUCTASE INHIBITORS [Concomitant]
     Dates: start: 20110719
  6. ANGIOTENSIN II ANTAGONISTS [Concomitant]
     Dates: start: 20110719
  7. BETA BLOCKING AGENTS [Concomitant]
  8. DIURETICS [Concomitant]
  9. ACE INHIBITOR NOS [Concomitant]
  10. EZETIMIBE [Concomitant]
  11. ASPIRIN [Concomitant]

REACTIONS (2)
  - Subdural haematoma [Recovered/Resolved]
  - Gait disturbance [Recovered/Resolved]
